FAERS Safety Report 4414136-2 (Version None)
Quarter: 2004Q3

REPORT INFORMATION
  Report Type: 
  Country: None (occurrence: None)
  Receive Date: 20040729
  Receipt Date: 20040610
  Transmission Date: 20050211
  Serious: Yes (Death)
  Sender: FDA-Public Use
  Company Number: M2004-0909

PATIENT
  Age: 41 Year
  Sex: Male

DRUGS (8)
  1. LOPERAMIDE [Suspect]
     Indication: SUICIDE ATTEMPT
     Dosage: 40 MG ONCE PO (ORAL)
     Route: 048
  2. ALLOPURINOL [Suspect]
     Indication: SUICIDE ATTEMPT
     Dosage: 56 DF ONCE PO (ORAL)
     Route: 048
  3. JOSAMYCIN (JOSAMYCIN) [Suspect]
     Indication: SUICIDE ATTEMPT
     Dosage: 10 G ONCE PO (ORAL)
     Route: 048
  4. COLCHICINE (COLCHICINE) [Suspect]
     Indication: SUICIDE ATTEMPT
     Dosage: 20 MG ONCE PO (ORAL)
     Route: 048
  5. COLCHIMAX (COLCHICINE/TIEMONIUM IODIDE/OPIUM/PHENOBARBITAL) [Suspect]
     Indication: SUICIDE ATTEMPT
     Dosage: 20 DF ONCE PO (ORAL)
     Route: 048
  6. VISCERALGINE FORTE (TIEMONIUM METHYLSULFATE/NORAMIDOPYRINE SULFONATE/C [Suspect]
     Indication: SUICIDE ATTEMPT
     Dosage: 20 DF ONCE PO (ORAL)
     Route: 048
  7. SPIRONOLACTONE [Suspect]
     Indication: SUICIDE ATTEMPT
     Dosage: 1.000 MG ONCE PO (ORAL)
     Route: 048
  8. BOTTLE OF WINE (ALCOHOL) [Suspect]
     Indication: SUICIDE ATTEMPT
     Dosage: PO (ORAL)
     Route: 048

REACTIONS (25)
  - ACIDOSIS [None]
  - AGITATION [None]
  - ANURIA [None]
  - BODY TEMPERATURE INCREASED [None]
  - CARDIAC ARREST [None]
  - CATHETER SITE HAEMORRHAGE [None]
  - CIRCULATORY COLLAPSE [None]
  - CYANOSIS [None]
  - DIARRHOEA [None]
  - DISSEMINATED INTRAVASCULAR COAGULATION [None]
  - DRUG LEVEL ABOVE THERAPEUTIC [None]
  - DRUG SCREEN POSITIVE [None]
  - HEART RATE INCREASED [None]
  - HEPATIC FUNCTION ABNORMAL [None]
  - HYPOTENSION [None]
  - HYPOXIA [None]
  - LIVEDO RETICULARIS [None]
  - MULTIPLE DRUG OVERDOSE [None]
  - PERIPHERAL COLDNESS [None]
  - RENAL FAILURE [None]
  - RESPIRATORY RATE INCREASED [None]
  - SHOCK [None]
  - URINE OUTPUT DECREASED [None]
  - VOMITING [None]
  - WHITE BLOOD CELL COUNT INCREASED [None]
